FAERS Safety Report 6792558-2 (Version None)
Quarter: 2010Q2

REPORT INFORMATION
  Report Type: 
  Country: None (occurrence: None)
  Receive Date: 20100624
  Receipt Date: 20080818
  Transmission Date: 20101027
  Serious: No
  Sender: FDA-Public Use
  Company Number: US-PFIZER INC-2008069176

PATIENT
  Sex: Female

DRUGS (1)
  1. XALATAN [Suspect]
     Dates: start: 20041201

REACTIONS (3)
  - EYE DISORDER [None]
  - EYE IRRITATION [None]
  - RASH [None]
